FAERS Safety Report 6157672-3 (Version None)
Quarter: 2009Q2

REPORT INFORMATION
  Report Type: 
  Country: None (occurrence: None)
  Receive Date: 20090416
  Receipt Date: 20090406
  Transmission Date: 20091009
  Serious: Yes (Other)
  Sender: FDA-Public Use
  Company Number: DE-ABBOTT-08P-062-0482409-00

PATIENT
  Sex: Female

DRUGS (17)
  1. SEVOFLURANE [Suspect]
     Indication: ANAESTHESIA
     Route: 055
     Dates: start: 20060627
  2. SEVOFLURANE [Suspect]
     Indication: CONGENITAL TERATOMA
  3. SUFENTANIL [Suspect]
     Indication: DRUG USE FOR UNKNOWN INDICATION
  4. THIOPENTAL SODIUM [Concomitant]
     Indication: ANAESTHESIA
     Dosage: 15 MG (= 5.4 MG/KG)
  5. CISATRACURIUMBESILAT (NIMBEX) [Concomitant]
     Indication: FEELING OF RELAXATION
  6. PEDIATRIC BASIC SOLUTION [Concomitant]
     Indication: DRUG USE FOR UNKNOWN INDICATION
     Dosage: 10 TO 25 ML/HR
  7. NACL BOLUSES [Concomitant]
     Indication: ANAESTHESIA
     Dosage: TOTAL 190 ML OVER APPROX 7 HR ANESTHESIA
  8. 150 ML FRESH FROZEN PLASMA [Concomitant]
     Indication: DRUG USE FOR UNKNOWN INDICATION
  9. ERYTHROCYTES [Concomitant]
     Indication: DRUG USE FOR UNKNOWN INDICATION
  10. CEFOTAXIM [Concomitant]
     Indication: ANTIBIOTIC PROPHYLAXIS
  11. CEFOTAXIM [Concomitant]
  12. MIDAZOLAM HCL [Concomitant]
     Indication: SEDATION
     Route: 042
  13. PIRITRAMID (DIPIDOLOR) [Concomitant]
     Indication: SEDATION
     Dosage: 0.3 MG (=0.1 MG/KG)
  14. PHENOBARBITAL [Concomitant]
     Indication: SEDATION
     Dosage: 15 MG (=5.36 MG/KG)
  15. PARACETAMOL [Concomitant]
     Indication: DRUG USE FOR UNKNOWN INDICATION
     Dosage: 4 X 31 MG
     Route: 054
  16. POSTOPERATIVE FLUID APPLICATION [Concomitant]
     Indication: DRUG USE FOR UNKNOWN INDICATION
     Dosage: 12.3 ML/H
  17. FRESH FROZEN PLASMA [Concomitant]
     Indication: DRUG USE FOR UNKNOWN INDICATION

REACTIONS (6)
  - ANAEMIA [None]
  - BLOOD LACTIC ACID INCREASED [None]
  - BRAIN INJURY [None]
  - HYDROCEPHALUS [None]
  - HYPERVENTILATION [None]
  - SKIN DISCOLOURATION [None]
